FAERS Safety Report 14768878 (Version 1)
Quarter: 2018Q2

REPORT INFORMATION
  Report Type: Spontaneous
  Country: US (occurrence: US)
  Receive Date: 20180417
  Receipt Date: 20180417
  Transmission Date: 20180711
  Serious: No
  Sender: FDA-Public Use
  Company Number: US-DSJP-DSU-2018-109207

PATIENT
  Sex: Male

DRUGS (1)
  1. MORPHABOND ER [Suspect]
     Active Substance: MORPHINE SULFATE
     Indication: BACK PAIN
     Dosage: 30 MG, BID
     Route: 048

REACTIONS (2)
  - Medication residue present [Not Recovered/Not Resolved]
  - Drug ineffective [Not Recovered/Not Resolved]
